FAERS Safety Report 5401153-9 (Version None)
Quarter: 2007Q3

REPORT INFORMATION
  Report Type: 
  Country: None (occurrence: None)
  Receive Date: 20070726
  Receipt Date: 20070719
  Transmission Date: 20080115
  Serious: Yes (Other)
  Sender: FDA-Public Use
  Company Number: 2007BI015416

PATIENT
  Sex: Female

DRUGS (1)
  1. AVONEX LYOPHILIZED [Suspect]
     Indication: DRUG USE FOR UNKNOWN INDICATION
     Dosage: IM
     Route: 030
     Dates: start: 20020611

REACTIONS (13)
  - BACK PAIN [None]
  - BLOOD CHOLESTEROL INCREASED [None]
  - CUTANEOUS SARCOIDOSIS [None]
  - HEADACHE [None]
  - HYPERTENSION [None]
  - KIDNEY INFECTION [None]
  - LABYRINTHITIS [None]
  - MEMORY IMPAIRMENT [None]
  - MUSCULAR WEAKNESS [None]
  - NAUSEA [None]
  - PAIN IN EXTREMITY [None]
  - PULMONARY SARCOIDOSIS [None]
  - VITILIGO [None]
